FAERS Safety Report 8962823 (Version 3)
Quarter: 2013Q1

REPORT INFORMATION
  Report Type: Spontaneous
  Country: US (occurrence: US)
  Receive Date: 20121214
  Receipt Date: 20130108
  Transmission Date: 20140127
  Serious: Yes (Death)
  Sender: FDA-Public Use
  Company Number: US-009507513-1212USA004506

PATIENT
  Sex: Female

DRUGS (1)
  1. NASONEX [Suspect]
     Dosage: 50 MICROGRAM,1STANDARD DOSE, UNK

REACTIONS (3)
  - Septic shock [Fatal]
  - Pneumonia [Fatal]
  - Product quality issue [Unknown]
